FAERS Safety Report 11576404 (Version 1)
Quarter: 2015Q3

REPORT INFORMATION
  Report Type: Spontaneous
  Country: US (occurrence: US)
  Receive Date: 20150930
  Receipt Date: 20150930
  Transmission Date: 20151125
  Serious: No
  Sender: FDA-Public Use
  Company Number: US-DRREDDYS-USA/USA/15/0045928

PATIENT
  Age: 74 Year
  Sex: Female
  Weight: 58.05 kg

DRUGS (1)
  1. AMOXICILLIN W/CLAVULANATE POTASSIUM 500 MG TABLETS [Suspect]
     Active Substance: AMOXICILLIN\CLAVULANATE POTASSIUM
     Indication: SINUS DISORDER
     Route: 048

REACTIONS (1)
  - Product odour abnormal [Recovering/Resolving]
